FAERS Safety Report 24842011 (Version 1)
Quarter: 2025Q1

REPORT INFORMATION
  Report Type: Spontaneous
  Country: TR (occurrence: TR)
  Receive Date: 20250114
  Receipt Date: 20250114
  Transmission Date: 20250409
  Serious: Yes (Other)
  Sender: SANDOZ
  Company Number: TR-MLMSERVICE-20250106-PI332318-00147-1

PATIENT
  Age: 17 Year
  Sex: Male

DRUGS (2)
  1. FILGRASTIM [Suspect]
     Active Substance: FILGRASTIM
     Indication: Infection prophylaxis
     Route: 065
  2. FILGRASTIM [Suspect]
     Active Substance: FILGRASTIM
     Indication: Neutrophil count decreased

REACTIONS (1)
  - Pleural effusion [Recovered/Resolved]
